FAERS Safety Report 10207437 (Version 2)
Quarter: 2014Q2

REPORT INFORMATION
  Report Type: Spontaneous
  Country: US (occurrence: US)
  Receive Date: 20140530
  Receipt Date: 20140530
  Transmission Date: 20141212
  Serious: No
  Sender: FDA-Public Use
  Company Number: US-BRISTOL-MYERS SQUIBB COMPANY-18803916

PATIENT
  Age: 53 Year
  Sex: Female

DRUGS (3)
  1. SUSTIVA [Suspect]
  2. VIREAD [Concomitant]
  3. ATRIPLA [Concomitant]
     Dosage: SUSPENSION

REACTIONS (1)
  - Dysphagia [Unknown]
